FAERS Safety Report 21991708 (Version 1)
Quarter: 2023Q1

REPORT INFORMATION
  Report Type: Spontaneous
  Country: US (occurrence: US)
  Receive Date: 20230214
  Receipt Date: 20230214
  Transmission Date: 20230418
  Serious: No
  Sender: FDA-Public Use
  Company Number: US-ELI_LILLY_AND_COMPANY-US202302002163

PATIENT
  Sex: Female

DRUGS (1)
  1. MOUNJARO [Suspect]
     Active Substance: TIRZEPATIDE
     Indication: Hepatic steatosis
     Dosage: 2.5 MG, UNKNOWN
     Route: 065
     Dates: start: 202301

REACTIONS (7)
  - Gastroenteritis viral [Unknown]
  - Cold sweat [Unknown]
  - Feeling abnormal [Unknown]
  - Off label use [Unknown]
  - Feeding disorder [Unknown]
  - Abdominal pain upper [Unknown]
  - Diarrhoea [Unknown]

NARRATIVE: CASE EVENT DATE: 20230101
